FAERS Safety Report 4279921-9 (Version None)
Quarter: 2004Q1

REPORT INFORMATION
  Report Type: 
  Country: None (occurrence: None)
  Receive Date: 20040126
  Receipt Date: 20040113
  Transmission Date: 20041129
  Serious: Yes (Life-Threatening, Hospitalization, Other)
  Sender: FDA-Public Use
  Company Number: 081-0366-M0000002

PATIENT
  Age: 1 Year
  Sex: Male
  Weight: 9.615 kg

DRUGS (9)
  1. ZARONTIN SYRUP [Suspect]
     Indication: CONVULSION
     Dosage: 200 MG DAILY, ORAL
     Route: 048
     Dates: start: 20000811, end: 20000901
  2. PHENOBARBITAL TAB [Suspect]
     Indication: CONVULSION
     Dosage: 40 MG DAILY, ORAL
     Route: 048
     Dates: start: 19991202
  3. DEPAKENE [Suspect]
     Indication: CONVULSION
     Dosage: 350 MG DAILY, ORAL
     Route: 048
     Dates: start: 20000124
  4. NITRAZEPAM [Concomitant]
  5. RADONNA (FUROSEMIDE) [Concomitant]
  6. PROCATEROL HCL [Concomitant]
  7. MUCODYN (CARBOCISTEINE) [Concomitant]
  8. MIYA-BM (MIYARI BACTERIA) [Concomitant]
  9. ADSORBIN (ALUMINIUM SILICATE) [Concomitant]

REACTIONS (13)
  - AGRANULOCYTOSIS [None]
  - ALANINE AMINOTRANSFERASE INCREASED [None]
  - ASPARTATE AMINOTRANSFERASE INCREASED [None]
  - BLOOD LACTATE DEHYDROGENASE INCREASED [None]
  - C-REACTIVE PROTEIN INCREASED [None]
  - DISSEMINATED INTRAVASCULAR COAGULATION [None]
  - DRUG INEFFECTIVE [None]
  - HAEMATOCRIT DECREASED [None]
  - HAEMOGLOBIN DECREASED [None]
  - LYMPHOCYTE STIMULATION TEST POSITIVE [None]
  - PNEUMONIA [None]
  - PYREXIA [None]
  - TACHYPNOEA [None]
